FAERS Safety Report 6817405-1 (Version None)
Quarter: 2010Q3

REPORT INFORMATION
  Report Type: 
  Country: None (occurrence: None)
  Receive Date: 20100706
  Receipt Date: 20100624
  Transmission Date: 20110219
  Serious: Yes (Hospitalization, Congenital Anomaly)
  Sender: FDA-Public Use
  Company Number: A0810843A

PATIENT
  Sex: Male
  Weight: 3.7 kg

DRUGS (5)
  1. LAMICTAL [Suspect]
     Indication: BIPOLAR DISORDER
     Dosage: 250MG PER DAY
  2. TYLENOL W/ CODEINE NO. 2 [Concomitant]
     Dates: start: 20071222
  3. FOLIC ACID [Concomitant]
  4. PRENATAL VITAMINS [Concomitant]
  5. LITHIUM CARBONATE [Concomitant]
     Dosage: 100MG PER DAY
     Dates: end: 20071020

REACTIONS (3)
  - CLEFT LIP [None]
  - CLEFT PALATE [None]
  - DRUG EXPOSURE DURING PREGNANCY [None]
